FAERS Safety Report 11513090 (Version 1)
Quarter: 2015Q3

REPORT INFORMATION
  Report Type: Spontaneous
  Country: US (occurrence: None)
  Receive Date: 20150915
  Receipt Date: 20150915
  Transmission Date: 20151125
  Serious: Yes (Life-Threatening, Hospitalization, Disabling)
  Sender: FDA-Public Use
  Company Number: None

PATIENT
  Age: 59 Year
  Sex: Male
  Weight: 84.5 kg

DRUGS (6)
  1. RENEGEL [Concomitant]
  2. COUMADIN [Concomitant]
     Active Substance: WARFARIN SODIUM
  3. SENSIPAR [Concomitant]
     Active Substance: CINACALCET HYDROCHLORIDE
  4. RENVELLA [Concomitant]
  5. MIDODRINE [Suspect]
     Active Substance: MIDODRINE
     Indication: BLOOD PRESSURE MEASUREMENT
     Dosage: 5/10 MG
  6. PHOSLO [Concomitant]
     Active Substance: CALCIUM ACETATE

REACTIONS (3)
  - Memory impairment [None]
  - Dizziness [None]
  - Loss of consciousness [None]

NARRATIVE: CASE EVENT DATE: 20150914
